FAERS Safety Report 7427953-1 (Version None)
Quarter: 2011Q2

REPORT INFORMATION
  Report Type: 
  Country: None (occurrence: None)
  Receive Date: 20110421
  Receipt Date: 20110321
  Transmission Date: 20111010
  Serious: Yes (Hospitalization)
  Sender: FDA-Public Use
  Company Number: US-BAYER-2010-001551

PATIENT
  Age: 18 Year
  Sex: Female
  Weight: 83.9 kg

DRUGS (2)
  1. YAZ [Suspect]
     Indication: CONTRACEPTION
     Dosage: UNK
     Dates: start: 20070327, end: 20090401
  2. YASMIN [Suspect]

REACTIONS (2)
  - COLITIS [None]
  - GALLBLADDER DISORDER [None]
